FAERS Safety Report 10213322 (Version 2)
Quarter: 2014Q2

REPORT INFORMATION
  Report Type: Spontaneous
  Country: CA (occurrence: CA)
  Receive Date: 20140603
  Receipt Date: 20140603
  Transmission Date: 20141212
  Serious: Yes (Other)
  Sender: FDA-Public Use
  Company Number: CA-AMGEN-CANSP2013008899

PATIENT
  Age: 81 Year
  Sex: Female
  Weight: 68.18 kg

DRUGS (1)
  1. PROLIA [Suspect]
     Indication: OSTEOPOROSIS POSTMENOPAUSAL
     Dosage: 60 MG, Q6MO
     Route: 058
     Dates: start: 20120906

REACTIONS (12)
  - Urinary tract infection [Unknown]
  - Arthropathy [Unknown]
  - Pain [Unknown]
  - Blood pressure increased [Unknown]
  - Headache [Unknown]
  - Vulvovaginal dryness [Unknown]
  - Vaginal discharge [Unknown]
  - Anaemia [Unknown]
  - Insomnia [Unknown]
  - Arthritis [Unknown]
  - Asthenia [Unknown]
  - Pain in extremity [Unknown]
